FAERS Safety Report 7474642-3 (Version None)
Quarter: 2011Q2

REPORT INFORMATION
  Report Type: 
  Country: None (occurrence: None)
  Receive Date: 20110504
  Receipt Date: 20110420
  Transmission Date: 20111010
  Serious: Yes (Other)
  Sender: FDA-Public Use
  Company Number: IDA-00535

PATIENT
  Age: 53 Year
  Sex: Female

DRUGS (1)
  1. INDERAL [Suspect]
     Indication: HEART RATE INCREASED
     Dosage: ORAL FORMULATION: TABLET
     Route: 048
     Dates: start: 20110401

REACTIONS (4)
  - WEIGHT INCREASED [None]
  - PYREXIA [None]
  - EYE DISORDER [None]
  - VISION BLURRED [None]
